FAERS Safety Report 10460810 (Version 1)
Quarter: 2014Q3

REPORT INFORMATION
  Report Type: Other
  Country: US (occurrence: US)
  Receive Date: 20140918
  Receipt Date: 20140918
  Transmission Date: 20150326
  Serious: Yes (Death)
  Sender: FDA-Public Use
  Company Number: US-SHIRE-US201405999

PATIENT
  Age: 79 Year

DRUGS (1)
  1. FOSRENOL [Suspect]
     Active Substance: LANTHANUM CARBONATE
     Indication: PRODUCT USED FOR UNKNOWN INDICATION
     Dosage: UNK UNK, UNKNOWN (UNKNOWN MG/FREQUENCY TOTALLING 4000 MG DAILY DOSE)
     Route: 048
     Dates: start: 20140515, end: 20140911

REACTIONS (1)
  - Death [Fatal]

NARRATIVE: CASE EVENT DATE: 20140915
